FAERS Safety Report 22267167 (Version 1)
Quarter: 2023Q2

REPORT INFORMATION
  Report Type: Spontaneous
  Country: US (occurrence: US)
  Receive Date: 20230428
  Receipt Date: 20230428
  Transmission Date: 20230721
  Serious: No
  Sender: FDA-Public Use
  Company Number: US-PFIZER INC-PV202300076329

PATIENT

DRUGS (2)
  1. CAVERJECT IMPULSE [Suspect]
     Active Substance: ALPROSTADIL
     Dosage: 10 UG
  2. CAVERJECT IMPULSE [Suspect]
     Active Substance: ALPROSTADIL
     Dosage: 20 UG

REACTIONS (1)
  - Drug ineffective [Unknown]
